FAERS Safety Report 8613063-4 (Version None)
Quarter: 2012Q3

REPORT INFORMATION
  Report Type: 
  Country: None (occurrence: None)
  Receive Date: 20120822
  Receipt Date: 20120816
  Transmission Date: 20120928
  Serious: No
  Sender: FDA-Public Use
  Company Number: US-PFIZER INC-2012201388

PATIENT
  Sex: Female

DRUGS (2)
  1. TOVIAZ [Suspect]
     Indication: HYPERTONIC BLADDER
     Dosage: UNK
     Dates: start: 20110101
  2. TOVIAZ [Suspect]
     Indication: INCONTINENCE

REACTIONS (1)
  - POLLAKIURIA [None]
